FAERS Safety Report 5450208-1 (Version None)
Quarter: 2007Q3

REPORT INFORMATION
  Report Type: 
  Country: None (occurrence: None)
  Receive Date: 20070912
  Receipt Date: 20070816
  Transmission Date: 20080115
  Serious: Yes (Hospitalization)
  Sender: FDA-Public Use
  Company Number: JP-PFIZER INC-2007063982

PATIENT
  Age: 66 Year
  Sex: Male

DRUGS (5)
  1. MIGLITOL TABLET [Suspect]
     Indication: DIABETES MELLITUS
     Dosage: DAILY DOSE:150MG
     Route: 048
     Dates: start: 20070127, end: 20070622
  2. GLUCOBAY [Concomitant]
     Indication: DIABETES MELLITUS
  3. VALSARTAN [Concomitant]
     Dosage: DAILY DOSE:80MG
     Route: 048
  4. LANSOPRAZOLE [Concomitant]
     Dosage: DAILY DOSE:15MG
     Route: 048
     Dates: start: 20040522
  5. LENDORMIN [Concomitant]
     Dosage: DAILY DOSE:.25MG
     Route: 048
     Dates: start: 20061230, end: 20070703

REACTIONS (10)
  - ALANINE AMINOTRANSFERASE INCREASED [None]
  - ASPARTATE AMINOTRANSFERASE INCREASED [None]
  - BLOOD BILIRUBIN INCREASED [None]
  - BLOOD GLUCOSE DECREASED [None]
  - BLOOD LACTATE DEHYDROGENASE INCREASED [None]
  - BLOOD TRIGLYCERIDES INCREASED [None]
  - GAMMA-GLUTAMYLTRANSFERASE INCREASED [None]
  - LISTLESS [None]
  - LIVER DISORDER [None]
  - MALAISE [None]
